FAERS Safety Report 23160779 (Version 1)
Quarter: 2023Q4

REPORT INFORMATION
  Report Type: Spontaneous
  Country: US (occurrence: US)
  Receive Date: 20231108
  Receipt Date: 20231108
  Transmission Date: 20240110
  Serious: No
  Sender: FDA-Public Use
  Company Number: US-SA-SAC20231030002923

PATIENT
  Age: 69 Year
  Sex: Female

DRUGS (3)
  1. DUPIXENT [Suspect]
     Active Substance: DUPILUMAB
     Indication: Asthma
     Dosage: 600 MG, 1X
     Route: 058
     Dates: start: 20231018, end: 20231018
  2. OMEPRAZOLE [Concomitant]
     Active Substance: OMEPRAZOLE
  3. RANITIDINE [Concomitant]
     Active Substance: RANITIDINE

REACTIONS (3)
  - Quality of life decreased [Recovering/Resolving]
  - Insomnia [Recovering/Resolving]
  - Asthma [Recovering/Resolving]

NARRATIVE: CASE EVENT DATE: 20231001
